FAERS Safety Report 6296646-9 (Version None)
Quarter: 2009Q3

REPORT INFORMATION
  Report Type: 
  Country: None (occurrence: None)
  Receive Date: 20090724
  Receipt Date: 20090325
  Transmission Date: 20100115
  Serious: Yes (Other)
  Sender: FDA-Public Use
  Company Number: 2009BI007279

PATIENT
  Sex: Female

DRUGS (2)
  1. TYSABRI [Suspect]
     Indication: MULTIPLE SCLEROSIS
     Dosage: 300 MG; QM, IV
     Route: 042
     Dates: start: 20071203
  2. AVONEX [Concomitant]

REACTIONS (2)
  - FALL [None]
  - LIMB INJURY [None]
